FAERS Safety Report 14975988 (Version 3)
Quarter: 2021Q4

REPORT INFORMATION
  Report Type: Spontaneous
  Country: US (occurrence: None)
  Receive Date: 20180605
  Receipt Date: 20211103
  Transmission Date: 20220303
  Serious: Yes (Life-Threatening, Hospitalization)
  Sender: FDA-Public Use
  Company Number: US-ROCHE-2036349

PATIENT
  Age: 4 Year
  Sex: Female
  Weight: 16.4 kg

DRUGS (5)
  1. ACTEMRA [Suspect]
     Active Substance: TOCILIZUMAB
     Indication: Autoimmune disorder
     Route: 042
     Dates: start: 20171103, end: 20171201
  2. ACTEMRA [Suspect]
     Active Substance: TOCILIZUMAB
     Indication: Inflammation
     Route: 042
     Dates: start: 201710, end: 201711
  3. SOLU-MEDROL [Concomitant]
     Active Substance: METHYLPREDNISOLONE SODIUM SUCCINATE
     Indication: Inflammation
     Route: 042
     Dates: start: 20171103
  4. BENADRYL [Concomitant]
     Active Substance: DIPHENHYDRAMINE HYDROCHLORIDE
  5. ACETAMINOPHEN [Concomitant]
     Active Substance: ACETAMINOPHEN

REACTIONS (12)
  - Anaphylactic reaction [Recovered/Resolved]
  - Graft versus host disease [Not Recovered/Not Resolved]
  - White blood cell count decreased [Recovered/Resolved]
  - Pallor [Unknown]
  - Petechiae [Unknown]
  - Hypotension [Unknown]
  - Cyanosis [Unknown]
  - Oropharyngeal pain [Unknown]
  - Throat tightness [Unknown]
  - Vomiting [Unknown]
  - Off label use [Unknown]
  - Laboratory test abnormal [Not Recovered/Not Resolved]

NARRATIVE: CASE EVENT DATE: 20171101
